FAERS Safety Report 21983742 (Version 2)
Quarter: 2023Q2

REPORT INFORMATION
  Report Type: Spontaneous
  Country: US (occurrence: US)
  Receive Date: 20230213
  Receipt Date: 20230510
  Transmission Date: 20230722
  Serious: No
  Sender: FDA-Public Use
  Company Number: US-SA-SAC20230210000168

PATIENT
  Sex: Female

DRUGS (1)
  1. DUPIXENT [Suspect]
     Active Substance: DUPILUMAB
     Dosage: 300 MG , OTHER
     Route: 058

REACTIONS (7)
  - Injection site pain [Unknown]
  - Dry skin [Unknown]
  - Periorbital irritation [Unknown]
  - Eye pain [Unknown]
  - Condition aggravated [Unknown]
  - Eyelid margin crusting [Unknown]
  - Dry eye [Unknown]
